FAERS Safety Report 5371382-1 (Version None)
Quarter: 2007Q2

REPORT INFORMATION
  Report Type: 
  Country: None (occurrence: None)
  Receive Date: 20070615
  Receipt Date: 20060607
  Transmission Date: 20071010
  Serious: Yes (Other)
  Sender: FDA-Public Use
  Company Number: 200614368US

PATIENT
  Sex: Male

DRUGS (2)
  1. LANTUS [Suspect]
     Indication: DIABETES MELLITUS INSULIN-DEPENDENT
     Dosage: 22 U QPM
  2. NOVOLOG [Concomitant]

REACTIONS (3)
  - HYPERHIDROSIS [None]
  - HYPOGLYCAEMIA [None]
  - TREMOR [None]
